FAERS Safety Report 9061551 (Version 3)
Quarter: 2013Q2

REPORT INFORMATION
  Report Type: Spontaneous
  Country: PT (occurrence: PT)
  Receive Date: 20130204
  Receipt Date: 20130412
  Transmission Date: 20140414
  Serious: Yes (Other)
  Sender: FDA-Public Use
  Company Number: PT-MILLENNIUM PHARMACEUTICALS, INC.-2013-00747

PATIENT
  Sex: 0

DRUGS (16)
  1. VELCADE [Suspect]
     Indication: PLASMA CELL MYELOMA
     Dosage: UNK
     Route: 058
     Dates: start: 20121004
  2. PREZISTA [Suspect]
     Indication: HIV INFECTION
     Dosage: 400 MG, 2 TABLETS A DAY
     Route: 065
     Dates: start: 20120511
  3. INTELENCE [Concomitant]
     Indication: HIV INFECTION
  4. CYCLOPHOSPHAMIDE [Concomitant]
     Indication: PLASMA CELL MYELOMA
  5. DEXAMETHASONE [Concomitant]
     Indication: PLASMA CELL MYELOMA
  6. TRAMADOL [Concomitant]
     Indication: PAIN
  7. METOCLOPRAMIDE [Concomitant]
     Indication: PAIN
  8. AMLODIPINE [Concomitant]
     Indication: HYPERTENSION
  9. ERYTHROPOIETIN [Concomitant]
  10. FOLIC ACID [Concomitant]
  11. ACICLOVIR [Concomitant]
  12. OMEPRAZOLE [Concomitant]
  13. CALCIUM CARBONATE [Concomitant]
  14. SUCRALFATE [Concomitant]
  15. MAGNESIUM ASPARTATE HYDROCHLORIDE [Concomitant]
  16. PAMIDRONATE DISODIUM [Concomitant]

REACTIONS (12)
  - Systolic dysfunction [Recovered/Resolved]
  - Irritability [Recovered/Resolved]
  - Cardiac failure [Recovered/Resolved]
  - Pyrexia [Recovered/Resolved]
  - Diastolic dysfunction [Recovered/Resolved]
  - Neutropenia [Recovered/Resolved]
  - Hypotension [Recovered/Resolved]
  - Dizziness [Recovered/Resolved]
  - Fatigue [Recovered/Resolved]
  - Tachycardia [Recovered/Resolved]
  - Pericardial effusion [Recovered/Resolved]
  - Overdose [Unknown]
